FAERS Safety Report 17791213 (Version 1)
Quarter: 2020Q2

REPORT INFORMATION
  Report Type: Spontaneous
  Country: US (occurrence: US)
  Receive Date: 20200514
  Receipt Date: 20200514
  Transmission Date: 20200714
  Serious: No
  Sender: FDA-Public Use
  Company Number: None

PATIENT
  Age: 70 Year
  Sex: Male
  Weight: 52 kg

DRUGS (1)
  1. RIVAROXABAN (RIVAROXABAN 20MG TAB ) [Suspect]
     Active Substance: RIVAROXABAN
     Indication: PERIPHERAL VASCULAR DISORDER
     Route: 048
     Dates: start: 20190307

REACTIONS (2)
  - Off label use [None]
  - Gastric haemorrhage [None]

NARRATIVE: CASE EVENT DATE: 20200220
